FAERS Safety Report 7395383-7 (Version None)
Quarter: 2011Q2

REPORT INFORMATION
  Report Type: 
  Country: None (occurrence: None)
  Receive Date: 20110405
  Receipt Date: 20110322
  Transmission Date: 20111010
  Serious: Yes (Hospitalization)
  Sender: FDA-Public Use
  Company Number: JP-JNJFOC-20110304500

PATIENT
  Sex: Male
  Weight: 58 kg

DRUGS (36)
  1. REMICADE [Suspect]
     Route: 042
  2. REMICADE [Suspect]
     Route: 042
  3. REMICADE [Suspect]
     Route: 042
  4. REMICADE [Suspect]
     Route: 042
  5. PREDONINE [Concomitant]
     Route: 048
  6. BETAMETHASONE SODIUM PHOSPHATE [Concomitant]
     Indication: BEHCET'S SYNDROME
     Dosage: LEFT EYE
  7. KENACORT [Concomitant]
     Dosage: LEFT EYE
  8. KENACORT [Concomitant]
     Dosage: LEFT EYE
  9. REMICADE [Suspect]
     Route: 042
  10. ANTIHISTAMINES [Concomitant]
     Indication: PROPHYLAXIS
  11. GASTER D [Concomitant]
     Indication: PROPHYLAXIS
     Route: 048
  12. XALATAN [Concomitant]
     Indication: GLAUCOMA
  13. TIMOLOL MALEATE [Concomitant]
     Indication: GLAUCOMA
  14. REMICADE [Suspect]
     Route: 042
  15. PREDONINE [Concomitant]
     Indication: BEHCET'S SYNDROME
     Route: 048
  16. PREDONINE [Concomitant]
     Route: 048
  17. REMICADE [Suspect]
     Route: 042
  18. REMICADE [Suspect]
     Route: 042
  19. REMICADE [Suspect]
     Route: 042
  20. FLUMETHOLON [Concomitant]
     Indication: BEHCET'S SYNDROME
  21. APLACE [Concomitant]
     Indication: PROPHYLAXIS
  22. REMICADE [Suspect]
     Route: 042
  23. PREDONINE [Concomitant]
     Route: 048
  24. PREDONINE [Concomitant]
     Route: 048
  25. FLUMETHOLON [Concomitant]
  26. REMICADE [Suspect]
     Route: 042
  27. REMICADE [Suspect]
     Route: 042
  28. REMICADE [Suspect]
     Route: 042
  29. BETAMETHASONE SODIUM PHOSPHATE [Concomitant]
     Dosage: BOTH EYES
  30. KENACORT [Concomitant]
     Indication: BEHCET'S SYNDROME
     Dosage: LEFT EYE
  31. REMICADE [Suspect]
     Indication: BEHCET'S SYNDROME
     Route: 042
  32. REMICADE [Suspect]
     Route: 042
  33. REMICADE [Suspect]
     Route: 042
  34. PREDONINE [Concomitant]
     Route: 048
  35. PREDONINE [Concomitant]
     Route: 048
  36. CRAVIT [Concomitant]
     Indication: PROPHYLAXIS

REACTIONS (2)
  - PNEUMOTHORAX [None]
  - LEUKAEMIA [None]
